FAERS Safety Report 19612120 (Version 1)
Quarter: 2021Q3

REPORT INFORMATION
  Report Type: Spontaneous
  Country: US (occurrence: US)
  Receive Date: 20210727
  Receipt Date: 20210727
  Transmission Date: 20211014
  Serious: No
  Sender: FDA-Public Use
  Company Number: US-MTPC-MTDA2021-0017561

PATIENT
  Sex: Male

DRUGS (1)
  1. RADICAVA [Suspect]
     Active Substance: EDARAVONE
     Indication: PRODUCT USED FOR UNKNOWN INDICATION
     Dosage: 10 ON/18 OFF
     Route: 065
     Dates: end: 202102

REACTIONS (3)
  - Hyperhidrosis [Unknown]
  - Dyspnoea [Unknown]
  - Chills [Unknown]
